FAERS Safety Report 9133261 (Version 1)
Quarter: 2013Q1

REPORT INFORMATION
  Report Type: Report from Study
  Country: US (occurrence: US)
  Receive Date: 20130129
  Receipt Date: 20130129
  Transmission Date: 20140127
  Serious: No
  Sender: FDA-Public Use
  Company Number: US-ABBOTT-12P-163-0933601-00

PATIENT
  Age: 27 Year
  Sex: Female

DRUGS (6)
  1. HUMIRA 40 MG/0.8 ML PEN [Suspect]
     Indication: RHEUMATOID ARTHRITIS
     Dates: start: 20120419
  2. KEPPRA [Concomitant]
     Indication: EPILEPSY
  3. LYRICA [Concomitant]
     Indication: FIBROMYALGIA
  4. CELEXA [Concomitant]
     Indication: MOOD SWINGS
  5. NYCANTA [Concomitant]
     Indication: PAIN
     Dosage: 1-2 TIMES PER DAY
  6. HYDROXYZINE [Concomitant]
     Indication: SEASONAL ALLERGY

REACTIONS (6)
  - Musculoskeletal stiffness [Not Recovered/Not Resolved]
  - Pain in extremity [Not Recovered/Not Resolved]
  - Urticaria [Not Recovered/Not Resolved]
  - Dyspnoea [Not Recovered/Not Resolved]
  - Nausea [Not Recovered/Not Resolved]
  - Rash erythematous [Unknown]
